FAERS Safety Report 9230435 (Version 2)
Quarter: 2013Q2

REPORT INFORMATION
  Report Type: Spontaneous
  Country: AU (occurrence: AU)
  Receive Date: 20130415
  Receipt Date: 20130507
  Transmission Date: 20140414
  Serious: Yes (Hospitalization)
  Sender: FDA-Public Use
  Company Number: AU-PFIZER INC-2013113854

PATIENT
  Age: 81 Year
  Sex: Female
  Weight: 68 kg

DRUGS (17)
  1. PREGABALIN [Suspect]
     Indication: PAIN
     Dosage: 900MG IN THE MORNING, 900MG AT MIDDAY, AND 600MG AT NIGHT
     Route: 048
     Dates: start: 201303, end: 20130321
  2. PARACETAMOL SR [Concomitant]
     Dosage: 1330 MG, 3X/DAY
  3. BUPRENORPHINE [Concomitant]
     Dosage: 30 UG, WEEKLY
  4. BUPRENORPHINE [Concomitant]
     Dosage: 200MCG EVERY TWO HOURS AS REQUIRED
  5. TRAMADOL SR [Concomitant]
     Dosage: 150 MG, 2X/DAY
  6. TRAMADOL [Concomitant]
     Dosage: 50MG EVERY FOUR HOURS AS NEEDED
  7. MOVICOL [Concomitant]
     Dosage: 1 UNK, AS NEEDED
  8. DILTIAZEM SR [Concomitant]
     Dosage: 240 MG, 1X/DAY
  9. SALICYLIC ACID [Concomitant]
     Dosage: 100 MG, 1X/DAY
  10. THYROXIN [Concomitant]
     Dosage: 50 UG, 1X/DAY
  11. RABEPRAZOLE [Concomitant]
     Dosage: 20 MG, 1X/DAY
  12. COLECALCIFEROL [Concomitant]
     Dosage: 25 UG, 1X/DAY
  13. CALCIUM CARBONATE [Concomitant]
     Dosage: 600 MG, 2X/DAY
  14. METOPROLOL [Concomitant]
     Dosage: 25 MG, 2X/DAY
  15. AMOXICILLIN [Concomitant]
     Dosage: 500 MG, 2X/DAY
  16. ENOXAPARIN [Concomitant]
     Dosage: 40 MG, 1X/DAY
  17. ALENDRONATE SODIUM [Concomitant]
     Dosage: 70 MG, WEEKLY

REACTIONS (6)
  - Overdose [Recovered/Resolved]
  - Somnolence [Unknown]
  - Dizziness [Recovered/Resolved]
  - Fall [Recovered/Resolved]
  - Rib fracture [Recovered/Resolved]
  - Grip strength decreased [Recovered/Resolved]
